FAERS Safety Report 5844675-9 (Version None)
Quarter: 2008Q3

REPORT INFORMATION
  Report Type: 
  Country: None (occurrence: None)
  Receive Date: 20080812
  Receipt Date: 20080806
  Transmission Date: 20090109
  Serious: Yes (Death, Life-Threatening)
  Sender: FDA-Public Use
  Company Number: 2008-181713-NL

PATIENT
  Age: 4 Month
  Sex: Female

DRUGS (6)
  1. DEXAMETHASONE TAB [Suspect]
     Indication: ACUTE LYMPHOCYTIC LEUKAEMIA
     Dosage: 10 MG/M2 ORAL
     Route: 048
  2. ASPARAGINASE [Suspect]
     Indication: ACUTE LYMPHOCYTIC LEUKAEMIA
     Dosage: 6000 DF TW
  3. CYCLOPHOSPHAMIDE [Suspect]
     Indication: ACUTE LYMPHOCYTIC LEUKAEMIA
     Dosage: 600 MG/M2 ONCE
  4. CYTARABINE [Suspect]
     Indication: ACUTE LYMPHOCYTIC LEUKAEMIA
     Dosage: 75 MG/M2
  5. METHOTREXATE SODIUM [Suspect]
     Dosage: DF
  6. VINCRISTINE SULFATE [Suspect]
     Indication: ACUTE LYMPHOCYTIC LEUKAEMIA
     Dosage: 1.5 MG/M2 WEEKLY

REACTIONS (13)
  - ADENOVIRAL HEPATITIS [None]
  - ASCITES [None]
  - COAGULOPATHY [None]
  - ENTEROCOLITIS HAEMORRHAGIC [None]
  - GASTRITIS [None]
  - GENERAL PHYSICAL HEALTH DETERIORATION [None]
  - HEPATIC FAILURE [None]
  - HEPATIC HAEMORRHAGE [None]
  - HEPATIC NECROSIS [None]
  - LIVER ABSCESS [None]
  - NEUTROPENIA [None]
  - NO THERAPEUTIC RESPONSE [None]
  - SUBARACHNOID HAEMORRHAGE [None]
